FAERS Safety Report 6855253-7 (Version None)
Quarter: 2010Q3

REPORT INFORMATION
  Report Type: 
  Country: None (occurrence: None)
  Receive Date: 20100719
  Receipt Date: 20100708
  Transmission Date: 20110219
  Serious: Yes (Hospitalization, Other)
  Sender: FDA-Public Use
  Company Number: US-BIOGENIDEC-2010BI005196

PATIENT
  Age: 72 Year
  Sex: Female

DRUGS (1)
  1. AVONEX [Suspect]
     Indication: MULTIPLE SCLEROSIS
     Route: 030
     Dates: end: 20091102

REACTIONS (5)
  - ASTHMA [None]
  - ATRIAL FIBRILLATION [None]
  - DIARRHOEA [None]
  - HAEMOGLOBIN DECREASED [None]
  - OSTEOARTHRITIS [None]
